FAERS Safety Report 5782954-4 (Version None)
Quarter: 2008Q2

REPORT INFORMATION
  Report Type: 
  Country: None (occurrence: None)
  Receive Date: 20080624
  Receipt Date: 20080619
  Transmission Date: 20081010
  Serious: Yes (Other)
  Sender: FDA-Public Use
  Company Number: DE-BRISTOL-MYERS SQUIBB COMPANY-14235261

PATIENT
  Age: 53 Year
  Sex: Female
  Weight: 69 kg

DRUGS (7)
  1. HYDROXYUREA [Suspect]
     Route: 048
     Dates: start: 20080619, end: 20080619
  2. DOMINAL [Suspect]
     Route: 048
     Dates: start: 20080619, end: 20080619
  3. HALDOL [Suspect]
     Route: 048
     Dates: start: 20080619, end: 20080619
  4. LORAZEPAM [Suspect]
     Route: 048
     Dates: start: 20080619, end: 20080619
  5. METOPROLOL [Suspect]
     Route: 048
     Dates: start: 20080619, end: 20080619
  6. PERAZINE [Suspect]
     Route: 048
     Dates: start: 20080619, end: 20080619
  7. PROMETHAZINE [Suspect]
     Route: 048
     Dates: start: 20080619, end: 20080619

REACTIONS (2)
  - SOMNOLENCE [None]
  - SUICIDE ATTEMPT [None]
